FAERS Safety Report 5270306-5 (Version None)
Quarter: 2007Q1

REPORT INFORMATION
  Report Type: 
  Country: None (occurrence: None)
  Receive Date: 20070320
  Receipt Date: 20070308
  Transmission Date: 20070707
  Serious: Yes (Death, Hospitalization, Other)
  Sender: FDA-Public Use
  Company Number: US-PFIZER INC-2006030657

PATIENT
  Sex: Female

DRUGS (38)
  1. NEURONTIN [Suspect]
     Indication: BACK PAIN
     Dates: start: 19990707, end: 20040208
  2. NEURONTIN [Suspect]
     Indication: NEUROPATHY PERIPHERAL
  3. ALPRAZOLAM [Concomitant]
     Dates: start: 20021001, end: 20040301
  4. AMITRIPTYLINE HCL [Concomitant]
     Dates: start: 20030214, end: 20030312
  5. CARBAMAZEPINE [Concomitant]
     Dates: start: 19990702, end: 19990717
  6. CLONIDINE [Concomitant]
     Dates: start: 20020910, end: 20030823
  7. CYCLOBENZAPRINE HCL [Concomitant]
     Dates: start: 20031111, end: 20031211
  8. DECADRON [Concomitant]
     Dates: start: 20020812, end: 20021001
  9. HEXOL [Concomitant]
     Dates: start: 20020802, end: 20021001
  10. DIAZEPAM [Concomitant]
     Dates: start: 20030110, end: 20030817
  11. DICLOFENAC SODIUM [Concomitant]
     Dates: start: 20021211, end: 20030303
  12. DILAUDID [Concomitant]
  13. DURAGESIC-100 [Concomitant]
     Dates: start: 20031125, end: 20040120
  14. ENDOCET [Concomitant]
     Dates: start: 20030908, end: 20031112
  15. HYDROCODONE [Concomitant]
     Dates: start: 20010207, end: 20031201
  16. HYDROXYZINE [Concomitant]
     Dates: start: 20020916, end: 20021001
  17. MORPHINE [Concomitant]
  18. LEXAPRO [Concomitant]
     Dates: start: 20021202
  19. MECLIZINE [Concomitant]
     Dates: start: 20020914, end: 20021001
  20. METOCLOPRAMIDE [Concomitant]
     Dates: start: 20030908, end: 20031122
  21. MIRTAZAPINE [Concomitant]
     Dates: start: 20011126, end: 20040302
  22. MOBIC [Concomitant]
     Dates: start: 20021202
  23. ORAMORPH SR [Concomitant]
     Dates: start: 20020531
  24. OXYCODONE HCL [Concomitant]
     Dates: start: 20010613, end: 20030213
  25. PAXIL [Concomitant]
     Dates: start: 20031209, end: 20040108
  26. PERCOCET [Concomitant]
     Dates: start: 20030206, end: 20030804
  27. PHENAZOPYRIDINE HCL TAB [Concomitant]
     Dates: start: 20021206, end: 20021219
  28. PROMETHAZINE [Concomitant]
  29. ALL OTHER THERAPEUTIC PRODUCTS [Concomitant]
     Dates: start: 19990924
  30. SEROQUEL [Concomitant]
     Dates: start: 20040113
  31. ACETYLSALICYLIC ACID SRT [Concomitant]
     Dates: start: 20040203
  32. TOPAMAX [Concomitant]
     Dates: start: 20040102
  33. TRAMADOL HCL [Concomitant]
     Dates: start: 20020103
  34. TRAZODONE HCL [Concomitant]
     Dates: start: 20010920
  35. TRIMETHOBENZAMIDE [Concomitant]
     Dates: start: 20030906, end: 20030908
  36. ULTRACET [Concomitant]
     Dates: start: 20011117, end: 20021010
  37. EFFEXOR [Concomitant]
  38. KLOR-CON [Concomitant]

REACTIONS (8)
  - COMPLETED SUICIDE [None]
  - DETOXIFICATION [None]
  - DIZZINESS [None]
  - DRUG DEPENDENCE [None]
  - DRUG INEFFECTIVE [None]
  - PAIN [None]
  - PARAESTHESIA [None]
  - SYNCOPE [None]
